FAERS Safety Report 18286679 (Version 2)
Quarter: 2020Q4

REPORT INFORMATION
  Report Type: Spontaneous
  Country: US (occurrence: US)
  Receive Date: 20200921
  Receipt Date: 20201111
  Transmission Date: 20210113
  Serious: No
  Sender: FDA-Public Use
  Company Number: US-SA-2020SA247189

PATIENT

DRUGS (1)
  1. APIDRA SOLOSTAR [Suspect]
     Active Substance: INSULIN GLULISINE
     Indication: TYPE 1 DIABETES MELLITUS
     Dosage: 20/20/25 UNITS OF APIDRA MORNING, LUNCH AND DINNER
     Route: 065

REACTIONS (5)
  - Blood glucose fluctuation [Unknown]
  - Device leakage [Unknown]
  - Headache [Unknown]
  - Presyncope [Unknown]
  - Product dose omission issue [Unknown]
